FAERS Safety Report 8590976-3 (Version None)
Quarter: 2012Q3

REPORT INFORMATION
  Report Type: 
  Country: None (occurrence: None)
  Receive Date: 20120813
  Receipt Date: 20120725
  Transmission Date: 20120928
  Serious: No
  Sender: FDA-Public Use
  Company Number: US-ASTRAZENECA-2012SE53131

PATIENT
  Age: 78 Year
  Sex: Female

DRUGS (9)
  1. MV [Concomitant]
  2. JANUVIA [Suspect]
     Route: 065
  3. LISINOPRIL [Concomitant]
  4. ALEVE [Concomitant]
  5. LISINOPRIL AND HYDROCHLOROTHIAZIDE [Suspect]
     Dosage: 20/25MG EVERY DAY
     Route: 048
  6. SIMVASTATIN [Concomitant]
  7. AMARYL [Concomitant]
  8. ASPIRIN [Concomitant]
  9. METFORMIN HYDROCHLORIDE [Concomitant]

REACTIONS (3)
  - ABDOMINAL PAIN UPPER [None]
  - TYPE 2 DIABETES MELLITUS [None]
  - URINARY TRACT INFECTION [None]
